FAERS Safety Report 6732462-9 (Version None)
Quarter: 2010Q2

REPORT INFORMATION
  Report Type: 
  Country: None (occurrence: None)
  Receive Date: 20100519
  Receipt Date: 20100518
  Transmission Date: 20101027
  Serious: Yes (Hospitalization)
  Sender: FDA-Public Use
  Company Number: GXKR2010DE05433

PATIENT
  Age: 30 Year
  Sex: Female
  Weight: 86 kg

DRUGS (5)
  1. VALPROATE (NGX) [Suspect]
     Indication: EPILEPSY
     Dosage: 1300 MG, BID
     Route: 048
     Dates: start: 19990101, end: 20080101
  2. VALPROATE SODIUM [Suspect]
     Dosage: UNK
     Route: 048
     Dates: start: 20080101
  3. KEPPRA [Concomitant]
     Route: 048
  4. VESICARE [Concomitant]
     Route: 048
  5. DULOXETINE HYDROCHLORIDE [Concomitant]
     Route: 048

REACTIONS (1)
  - HIRSUTISM [None]
